FAERS Safety Report 20941010 (Version 2)
Quarter: 2022Q2

REPORT INFORMATION
  Report Type: Report from Study
  Country: JP (occurrence: JP)
  Receive Date: 20220609
  Receipt Date: 20220623
  Transmission Date: 20220721
  Serious: Yes (Hospitalization, Other)
  Sender: FDA-Public Use
  Company Number: JP-ONO-2022JP015412

PATIENT
  Age: 72 Year
  Sex: Male
  Weight: 57.1 kg

DRUGS (10)
  1. BMS-986310 [Suspect]
     Active Substance: BMS-986310
     Indication: Colorectal cancer
     Dosage: MOST RECENT DOSE WAS RECEIVED ON 17-MAY-2022
     Route: 048
     Dates: start: 20211214
  2. BEVACIZUMAB [Suspect]
     Active Substance: BEVACIZUMAB
     Indication: Colorectal cancer
     Dosage: MOST RECENT DOSE WAS RECEIVED ON 17-MAY-2022
     Route: 042
     Dates: start: 20211214
  3. OXALIPLATIN [Suspect]
     Active Substance: OXALIPLATIN
     Indication: Colorectal cancer
     Dosage: MOST RECENT DOSE WAS RECEIVED ON 17-MAY-2022
     Route: 042
     Dates: start: 20211214
  4. CAPECITABINE [Suspect]
     Active Substance: CAPECITABINE
     Indication: Colorectal cancer
     Dosage: MOST RECENT DOSE WAS RECEIVED ON 17-MAY-2022
     Route: 048
     Dates: start: 20211214
  5. JANUVIA [Concomitant]
     Active Substance: SITAGLIPTIN PHOSPHATE
     Indication: Type 2 diabetes mellitus
     Dosage: 50 MG, EVERYDAY
     Route: 048
     Dates: start: 2015
  6. AMARYL [Concomitant]
     Active Substance: GLIMEPIRIDE
     Indication: Type 2 diabetes mellitus
     Dosage: 1 MG, EVERYDAY
     Route: 048
     Dates: start: 20220309
  7. AMLODIPINE [Concomitant]
     Active Substance: AMLODIPINE BESYLATE
     Indication: Hypertension
     Dosage: 5 MG, EVERYDAY
     Route: 048
     Dates: start: 20220420
  8. CRESTOR [Concomitant]
     Active Substance: ROSUVASTATIN CALCIUM
     Indication: Dyslipidaemia
     Dosage: 25 MG, EVERYDAY
     Route: 048
     Dates: start: 2021
  9. LEVOTHYROXINE SODIUM [Concomitant]
     Active Substance: LEVOTHYROXINE SODIUM
     Indication: Hypothyroidism
     Dosage: 50 UG, EVERYDAY
     Route: 048
     Dates: start: 20220601
  10. MAGNESIUM OXIDE [Concomitant]
     Active Substance: MAGNESIUM OXIDE
     Indication: Constipation
     Dosage: 330 MG, PRN
     Route: 048
     Dates: start: 2021

REACTIONS (1)
  - Interstitial lung disease [Not Recovered/Not Resolved]

NARRATIVE: CASE EVENT DATE: 20220602
